FAERS Safety Report 4726120-X (Version None)
Quarter: 2005Q3

REPORT INFORMATION
  Report Type: 
  Country: None (occurrence: None)
  Receive Date: 20050725
  Receipt Date: 20050725
  Transmission Date: 20060218
  Serious: Yes (Other)
  Sender: FDA-Public Use
  Company Number: None

PATIENT
  Age: 80 Year
  Sex: Female

DRUGS (2)
  1. PREDNISOLONE [Suspect]
     Indication: CORNEAL GRAFT REJECTION
     Dosage: ONE GTT OD Q 12 HOURS
     Dates: start: 20050427, end: 20050721
  2. LUMIGAN [Concomitant]

REACTIONS (1)
  - THERAPY NON-RESPONDER [None]
